FAERS Safety Report 4512135-3 (Version None)
Quarter: 2004Q4

REPORT INFORMATION
  Report Type: 
  Country: None (occurrence: None)
  Receive Date: 20041129
  Receipt Date: 20040108
  Transmission Date: 20050328
  Serious: No
  Sender: FDA-Public Use
  Company Number: US-GLAXOSMITHKLINE-A0492024A

PATIENT
  Age: 83 Year
  Sex: Male

DRUGS (2)
  1. LANOXIN [Suspect]
     Indication: CARDIAC FAILURE
     Dosage: .125MG VARIABLE DOSE
     Route: 048
  2. RYTHMOL [Concomitant]

REACTIONS (1)
  - ASTHENIA [None]
